FAERS Safety Report 7123489-6 (Version None)
Quarter: 2010Q4

REPORT INFORMATION
  Report Type: 
  Country: None (occurrence: None)
  Receive Date: 20101125
  Receipt Date: 20101119
  Transmission Date: 20110411
  Serious: No
  Sender: FDA-Public Use
  Company Number: US-BIOGENIDEC-2010BI041021

PATIENT
  Age: 29 Year
  Sex: Female

DRUGS (3)
  1. AVONEX [Suspect]
     Indication: MULTIPLE SCLEROSIS
     Route: 030
     Dates: start: 20101103, end: 20101103
  2. AVONEX [Suspect]
     Route: 030
     Dates: start: 20101112, end: 20101112
  3. AVONEX [Suspect]
     Route: 030
     Dates: start: 20101119

REACTIONS (1)
  - CONTUSION [None]
